FAERS Safety Report 16895676 (Version 7)
Quarter: 2019Q4

REPORT INFORMATION
  Report Type: Report from Study
  Country: US (occurrence: US)
  Receive Date: 20191008
  Receipt Date: 20191203
  Transmission Date: 20200122
  Serious: Yes (Hospitalization, Other)
  Sender: FDA-Public Use
  Company Number: US-ACTELION-A-NJ2019-195294

PATIENT
  Age: 52 Year
  Sex: Female
  Weight: 74.83 kg

DRUGS (8)
  1. VELETRI [Suspect]
     Active Substance: EPOPROSTENOL
     Dosage: 8 NG/KG, PER MIN
     Route: 042
  2. TADALAFIL. [Concomitant]
     Active Substance: TADALAFIL
  3. VELETRI [Suspect]
     Active Substance: EPOPROSTENOL
     Dosage: 10 NG/KG, PER MIN
     Route: 042
  4. VELETRI [Suspect]
     Active Substance: EPOPROSTENOL
     Dosage: 8 NG/KG, PER MIN
     Route: 042
  5. VELETRI [Suspect]
     Active Substance: EPOPROSTENOL
     Dosage: 13 NG/KG, PER MIN
     Route: 042
  6. VELETRI [Suspect]
     Active Substance: EPOPROSTENOL
     Dosage: 7 NG/KG, PER MIN
     Route: 042
  7. VELETRI [Suspect]
     Active Substance: EPOPROSTENOL
     Indication: PULMONARY HYPERTENSION
     Dosage: 15 NG/KG, PER MIN
     Route: 042
  8. VELETRI [Suspect]
     Active Substance: EPOPROSTENOL
     Dosage: 9 NG/KG, PER MIN
     Route: 042

REACTIONS (35)
  - Pain in jaw [Unknown]
  - Dyspnoea exertional [Not Recovered/Not Resolved]
  - Catheter site rash [Unknown]
  - Anxiety [Unknown]
  - Diarrhoea [Unknown]
  - Myalgia [Unknown]
  - Mania [Unknown]
  - Oedema peripheral [Not Recovered/Not Resolved]
  - Presyncope [Unknown]
  - Bipolar disorder [Not Recovered/Not Resolved]
  - Lower respiratory tract infection [Unknown]
  - Nausea [Unknown]
  - Blood pressure increased [Not Recovered/Not Resolved]
  - Fatigue [Not Recovered/Not Resolved]
  - Dizziness exertional [Unknown]
  - Nasopharyngitis [Not Recovered/Not Resolved]
  - Cough [Unknown]
  - Constipation [Unknown]
  - Migraine [Unknown]
  - Device breakage [Unknown]
  - Headache [Unknown]
  - Dyspnoea [Recovering/Resolving]
  - Depression [Unknown]
  - Back pain [Not Recovered/Not Resolved]
  - Device occlusion [Unknown]
  - Dyspepsia [Unknown]
  - Flushing [Unknown]
  - Rash [Unknown]
  - Catheter site pruritus [Unknown]
  - Catheter site erythema [Unknown]
  - Catheter management [Unknown]
  - Catheter placement [Unknown]
  - Pain in extremity [Unknown]
  - Agitation [Unknown]
  - Feeling abnormal [Unknown]

NARRATIVE: CASE EVENT DATE: 201909
